FAERS Safety Report 14828705 (Version 2)
Quarter: 2018Q2

REPORT INFORMATION
  Report Type: Report from Study
  Country: US (occurrence: US)
  Receive Date: 20180430
  Receipt Date: 20180430
  Transmission Date: 20180711
  Serious: Yes (Death, Other)
  Sender: FDA-Public Use
  Company Number: US-INCYTE CORPORATION-2018IN004071

PATIENT

DRUGS (1)
  1. JAKAFI [Suspect]
     Active Substance: RUXOLITINIB
     Indication: HISTIOCYTOSIS HAEMATOPHAGIC
     Dosage: 5 MG, BID
     Route: 048

REACTIONS (2)
  - Off label use [Unknown]
  - Death [Fatal]
